FAERS Safety Report 20534159 (Version 1)
Quarter: 2022Q1

REPORT INFORMATION
  Report Type: Spontaneous
  Country: US (occurrence: None)
  Receive Date: 20220301
  Receipt Date: 20220301
  Transmission Date: 20220423
  Serious: Yes (Other)
  Sender: FDA-Public Use
  Company Number: US-ROCHE-3033979

PATIENT
  Sex: Female

DRUGS (2)
  1. COTELLIC [Suspect]
     Active Substance: COBIMETINIB
     Indication: Skin cancer
     Route: 048
     Dates: start: 20211209
  2. ZELBORAF [Suspect]
     Active Substance: VEMURAFENIB
     Indication: Skin cancer
     Route: 048
     Dates: start: 20211209

REACTIONS (1)
  - Thrombosis [Unknown]
